FAERS Safety Report 5389954-7 (Version None)
Quarter: 2007Q3

REPORT INFORMATION
  Report Type: 
  Country: None (occurrence: None)
  Receive Date: 20070716
  Receipt Date: 20070716
  Transmission Date: 20080115
  Serious: Yes (Life-Threatening, Hospitalization, Disabling, Other)
  Sender: FDA-Public Use
  Company Number: None

PATIENT
  Age: 70 Year
  Sex: Male
  Weight: 124.7392 kg

DRUGS (1)
  1. AVANDIA [Suspect]
     Indication: TYPE 2 DIABETES MELLITUS
     Dosage: 8 MG DAILY PO
     Route: 048
     Dates: start: 20021022, end: 20070522

REACTIONS (9)
  - BACK PAIN [None]
  - DECREASED ACTIVITY [None]
  - DYSPNOEA [None]
  - FLUID RETENTION [None]
  - GENERAL PHYSICAL HEALTH DETERIORATION [None]
  - IMPLANTABLE DEFIBRILLATOR INSERTION [None]
  - LOSS OF EMPLOYMENT [None]
  - PHARMACEUTICAL PRODUCT COMPLAINT [None]
  - VENTRICULAR TACHYCARDIA [None]
